FAERS Safety Report 14276535 (Version 4)
Quarter: 2019Q2

REPORT INFORMATION
  Report Type: Report from Study
  Country: CO (occurrence: CO)
  Receive Date: 20171212
  Receipt Date: 20190515
  Transmission Date: 20190711
  Serious: Yes (Hospitalization, Other)
  Sender: FDA-Public Use
  Company Number: CO-ASTELLAS-2017US034324

PATIENT
  Age: 47 Year
  Sex: Female

DRUGS (8)
  1. TACROLIMUS. [Suspect]
     Active Substance: TACROLIMUS
     Indication: HEART TRANSPLANT
     Route: 048
     Dates: start: 20150903, end: 201711
  2. TACROLIMUS. [Suspect]
     Active Substance: TACROLIMUS
     Route: 048
     Dates: start: 201711, end: 201802
  3. TACROLIMUS. [Suspect]
     Active Substance: TACROLIMUS
     Dosage: 7 MG, OTHER (7 MG ONE DAY AND THE OTHER DOES NOT TAKE IT )
     Route: 048
     Dates: start: 201902
  4. LOSARTAN. [Concomitant]
     Active Substance: LOSARTAN
     Indication: PRODUCT USED FOR UNKNOWN INDICATION
     Route: 065
  5. ATORVASTATIN [Concomitant]
     Active Substance: ATORVASTATIN
     Indication: PRODUCT USED FOR UNKNOWN INDICATION
     Dosage: UNK UNK, UNKNOWN FREQ.
     Route: 065
  6. MYCOPHENOLATE [Concomitant]
     Active Substance: MYCOPHENOLIC ACID
     Indication: HEART TRANSPLANT
     Dosage: 720 MG, EVERY 12 HOURS (360 MG TWO CAPSULES IN THE MORNING AND TWO CAPSULES OF 360 MG IN THE NIGHT)
     Route: 048
  7. CARVEDILOL. [Concomitant]
     Active Substance: CARVEDILOL
     Indication: PRODUCT USED FOR UNKNOWN INDICATION
     Route: 065
  8. PREDNISOLONE. [Concomitant]
     Active Substance: PREDNISOLONE
     Indication: PRODUCT USED FOR UNKNOWN INDICATION
     Route: 065

REACTIONS (4)
  - Inflammation [Recovering/Resolving]
  - Intentional product misuse [Unknown]
  - Headache [Recovered/Resolved]
  - Headache [Not Recovered/Not Resolved]

NARRATIVE: CASE EVENT DATE: 20170808
